FAERS Safety Report 16874042 (Version 2)
Quarter: 2019Q4

REPORT INFORMATION
  Report Type: Spontaneous
  Country: JP (occurrence: JP)
  Receive Date: 20191001
  Receipt Date: 20191001
  Transmission Date: 20200122
  Serious: Yes (Hospitalization)
  Sender: FDA-Public Use
  Company Number: PHHY2019JP225280

PATIENT
  Age: 30 Year
  Sex: Female

DRUGS (4)
  1. PREDNISOLONE. [Suspect]
     Active Substance: PREDNISOLONE
     Indication: SYSTEMIC LUPUS ERYTHEMATOSUS
     Dosage: 60 MG, QW
     Route: 065
     Dates: start: 2010
  2. PREDNISOLONE. [Suspect]
     Active Substance: PREDNISOLONE
     Dosage: 5 MG, QD
     Route: 065
  3. TACROLIMUS. [Suspect]
     Active Substance: TACROLIMUS
     Indication: SYSTEMIC LUPUS ERYTHEMATOSUS
     Dosage: 3 UNK, QD
     Route: 065
  4. PREDNISOLONE. [Suspect]
     Active Substance: PREDNISOLONE
     Dosage: 6 MG, QD
     Route: 065

REACTIONS (7)
  - Nausea [Recovering/Resolving]
  - Headache [Recovering/Resolving]
  - Vomiting [Recovering/Resolving]
  - Substance-induced psychotic disorder [Recovering/Resolving]
  - Reversible cerebral vasoconstriction syndrome [Recovering/Resolving]
  - Product use in unapproved indication [Unknown]
  - Drug level increased [Recovering/Resolving]

NARRATIVE: CASE EVENT DATE: 2010
